FAERS Safety Report 7525591-3 (Version None)
Quarter: 2011Q2

REPORT INFORMATION
  Report Type: 
  Country: None (occurrence: None)
  Receive Date: 20110606
  Receipt Date: 20110523
  Transmission Date: 20111010
  Serious: Yes (Disabling)
  Sender: FDA-Public Use
  Company Number: PHHY2010IT80420

PATIENT
  Sex: Female

DRUGS (1)
  1. ZOMETA [Suspect]
     Indication: MULTIPLE MYELOMA
     Dosage: 4MG+5ML, 4MG EVERY 28 DAYS
     Route: 042
     Dates: start: 20061101

REACTIONS (1)
  - OSTEONECROSIS OF JAW [None]
